FAERS Safety Report 18649105 (Version 2)
Quarter: 2020Q4

REPORT INFORMATION
  Report Type: Spontaneous
  Country: FR (occurrence: FR)
  Receive Date: 20201222
  Receipt Date: 20201224
  Transmission Date: 20210114
  Serious: Yes (Death, Congenital Anomaly)
  Sender: FDA-Public Use
  Company Number: FR-MYLANLABS-2020M1103367

PATIENT
  Age: 12 Week

DRUGS (2)
  1. ACIDE FOLIQUE [Concomitant]
     Active Substance: FOLIC ACID
     Dosage: 0.4 MILLIGRAM, QD
     Route: 064
     Dates: start: 20111017, end: 20111229
  2. MODAFINIL MYLAN 100 MG, COMPRIM? [Suspect]
     Active Substance: MODAFINIL
     Indication: HYPERSOMNIA
     Dosage: 200 MILLIGRAM, BID
     Route: 064
     Dates: start: 20111017, end: 20111229

REACTIONS (2)
  - Congenital central nervous system anomaly [Fatal]
  - Foetal exposure during pregnancy [Unknown]

NARRATIVE: CASE EVENT DATE: 20111222
